FAERS Safety Report 9068630 (Version 1)
Quarter: 2013Q1

REPORT INFORMATION
  Report Type: Report from Study
  Country: DE (occurrence: DE)
  Receive Date: 20130206
  Receipt Date: 20130206
  Transmission Date: 20140127
  Serious: Yes (Hospitalization, Other)
  Sender: FDA-Public Use
  Company Number: DE-ABBOTT-12P-062-1020956-00

PATIENT
  Age: 57 None
  Sex: Female
  Weight: 71 kg

DRUGS (11)
  1. HUMIRA [Suspect]
     Indication: PSORIASIS
     Route: 058
     Dates: start: 20110221
  2. HUMIRA [Suspect]
     Route: 058
     Dates: start: 20130117
  3. ANESTHESIA [Suspect]
     Indication: PRODUCT USED FOR UNKNOWN INDICATION
  4. DICLOFENAC [Suspect]
     Indication: SURGERY
  5. VOTUM [Concomitant]
     Indication: HYPERTENSION
  6. TORASEMIDE [Concomitant]
     Indication: PRODUCT USED FOR UNKNOWN INDICATION
  7. VERAPAMIL [Concomitant]
     Indication: HYPERTENSION
  8. GABAPENTINE [Concomitant]
     Indication: PRODUCT USED FOR UNKNOWN INDICATION
  9. TRIAMCINOLONE [Concomitant]
     Indication: PRODUCT USED FOR UNKNOWN INDICATION
     Route: 014
     Dates: start: 20121030, end: 20121030
  10. TRIAMCINOLONE [Concomitant]
     Route: 014
     Dates: start: 20121114, end: 20121114
  11. TRIAMCINOLONE [Concomitant]
     Route: 014
     Dates: start: 20121202, end: 20121202

REACTIONS (4)
  - Rotator cuff syndrome [Not Recovered/Not Resolved]
  - Pain [Not Recovered/Not Resolved]
  - Psoriasis [Not Recovered/Not Resolved]
  - Gastric disorder [Not Recovered/Not Resolved]
